FAERS Safety Report 20791398 (Version 4)
Quarter: 2022Q4

REPORT INFORMATION
  Report Type: Spontaneous
  Country: US (occurrence: US)
  Receive Date: 20220505
  Receipt Date: 20221216
  Transmission Date: 20230112
  Serious: No
  Sender: FDA-Public Use
  Company Number: US-PFIZER INC-2020169939

PATIENT
  Age: 49 Year
  Sex: Female

DRUGS (3)
  1. XELJANZ [Suspect]
     Active Substance: TOFACITINIB CITRATE
     Dosage: 10 MG, 1X/DAY
  2. XELJANZ [Suspect]
     Active Substance: TOFACITINIB CITRATE
     Dosage: 5 MG
     Dates: start: 20181203
  3. XELJANZ [Suspect]
     Active Substance: TOFACITINIB CITRATE
     Dosage: 5 MG
     Dates: start: 20191001

REACTIONS (7)
  - Product use issue [Unknown]
  - Off label use [Unknown]
  - Weight increased [Not Recovered/Not Resolved]
  - COVID-19 [Unknown]
  - Pruritus [Recovered/Resolved]
  - Contusion [Recovered/Resolved]
  - Cough [Unknown]

NARRATIVE: CASE EVENT DATE: 20211101
